FAERS Safety Report 10662672 (Version 3)
Quarter: 2015Q1

REPORT INFORMATION
  Report Type: Spontaneous
  Country: US (occurrence: US)
  Receive Date: 20141218
  Receipt Date: 20150123
  Transmission Date: 20150720
  Serious: Yes (Hospitalization, Other)
  Sender: FDA-Public Use
  Company Number: US-PFIZER INC-2014348343

PATIENT
  Age: 58 Year
  Sex: Female
  Weight: 54.88 kg

DRUGS (3)
  1. LYRICA [Suspect]
     Active Substance: PREGABALIN
     Indication: FIBROMYALGIA
  2. LYRICA [Suspect]
     Active Substance: PREGABALIN
     Indication: MULTIPLE SCLEROSIS
     Dosage: 225 MG, 2X/DAY
     Dates: start: 2000
  3. DICLOFENAC [Concomitant]
     Active Substance: DICLOFENAC
     Indication: OSTEOARTHRITIS
     Dosage: 75 MG, 2X/DAY

REACTIONS (8)
  - Product use issue [Unknown]
  - Disorientation [Unknown]
  - Vision blurred [Unknown]
  - Dizziness [Unknown]
  - Dehydration [Unknown]
  - Optic neuritis [Unknown]
  - Blood potassium decreased [Unknown]
  - Gastroenteritis [Unknown]

NARRATIVE: CASE EVENT DATE: 2000
